FAERS Safety Report 4357191-0 (Version None)
Quarter: 2004Q2

REPORT INFORMATION
  Report Type: 
  Country: None (occurrence: None)
  Receive Date: 20040512
  Receipt Date: 20040512
  Transmission Date: 20050107
  Serious: Yes (Hospitalization)
  Sender: FDA-Public Use
  Company Number: None

PATIENT
  Age: 70 Year
  Sex: Female
  Weight: 63.05 kg

DRUGS (3)
  1. ETOPOSIDE [Suspect]
     Indication: OVARIAN CANCER
     Dosage: 50 MG QD ORAL
     Route: 048
     Dates: start: 20040503, end: 20040511
  2. THALIDOMIDE 50 MG CELGENE [Suspect]
     Indication: OVARIAN CANCER
     Dosage: 50 MG QD ORAL
     Route: 048
     Dates: start: 20040503, end: 20040511
  3. MORPHINE [Concomitant]

REACTIONS (2)
  - NAUSEA [None]
  - VOMITING [None]
